FAERS Safety Report 10042469 (Version 2)
Quarter: 2014Q2

REPORT INFORMATION
  Report Type: Spontaneous
  Country: JP (occurrence: JP)
  Receive Date: 20140327
  Receipt Date: 20140627
  Transmission Date: 20141212
  Serious: Yes (Hospitalization, Other)
  Sender: FDA-Public Use
  Company Number: JP-PFIZER INC-2014080821

PATIENT
  Age: 73 Year
  Sex: Female
  Weight: 37.2 kg

DRUGS (15)
  1. SALAZOPYRIN [Suspect]
     Indication: COLITIS ULCERATIVE
     Dosage: 500 MG, 3X/DAY
     Route: 048
     Dates: start: 20040816, end: 20140121
  2. LYRICA [Concomitant]
     Dosage: UNK
     Route: 048
  3. TRAMCET [Concomitant]
     Dosage: UNK
     Route: 048
  4. DEPAS [Concomitant]
     Dosage: UNK
     Route: 048
  5. SELBEX [Concomitant]
     Dosage: UNK
     Route: 048
  6. NEUROTROPIN [Concomitant]
     Dosage: UNK
  7. STAYBLA [Concomitant]
     Dosage: UNK
     Route: 048
  8. GOSHAJINKIGAN [Concomitant]
     Dosage: UNK
     Route: 048
  9. LOXONIN TAPE [Concomitant]
     Dosage: UNK
     Route: 062
  10. PROSTAGLANDIN E1 [Concomitant]
     Dosage: UNK
     Route: 062
  11. CEREKINON [Concomitant]
     Dosage: UNK
     Route: 048
  12. ITOROL [Concomitant]
     Dosage: UNK
     Route: 048
  13. KAMISHOUYOUSAN [Concomitant]
     Dosage: UNK
     Route: 048
  14. MAGMITT [Concomitant]
     Dosage: UNK
     Route: 048
  15. ALOSENN [Concomitant]
     Dosage: UNK
     Route: 048

REACTIONS (2)
  - Platelet count decreased [Recovered/Resolved]
  - Haematochezia [Recovered/Resolved]
